FAERS Safety Report 5501142-X (Version None)
Quarter: 2007Q4

REPORT INFORMATION
  Report Type: 
  Country: None (occurrence: None)
  Receive Date: 20071026
  Receipt Date: 20071011
  Transmission Date: 20080405
  Serious: Yes (Death)
  Sender: FDA-Public Use
  Company Number: 2007001930

PATIENT
  Age: 74 Year
  Sex: Male
  Weight: 56.3 kg

DRUGS (8)
  1. ERLOTINIB (ERLOTINIB HCL) (TABLET) (ERLOTINIB HCL) [Suspect]
     Indication: NON-SMALL CELL LUNG CANCER
     Dosage: (150 MG,QD),ORAL; (100 MG,QD), ORAL
     Route: 048
     Dates: start: 20060326, end: 20060404
  2. ERLOTINIB (ERLOTINIB HCL) (TABLET) (ERLOTINIB HCL) [Suspect]
     Indication: NON-SMALL CELL LUNG CANCER
     Dosage: (150 MG,QD),ORAL; (100 MG,QD), ORAL
     Route: 048
     Dates: start: 20060426, end: 20060503
  3. ERLOTINIB (ERLOTINIB HCL) (TABLET) (ERLOTINIB HCL) [Suspect]
     Indication: NON-SMALL CELL LUNG CANCER
     Dosage: (150 MG,QD),ORAL; (100 MG,QD), ORAL
     Route: 048
     Dates: start: 20060504, end: 20060515
  4. ERLOTINIB (ERLOTINIB HCL) (TABLET) (ERLOTINIB HCL) [Suspect]
     Indication: NON-SMALL CELL LUNG CANCER
     Dosage: (150 MG,QD),ORAL; (100 MG,QD), ORAL
     Route: 048
     Dates: start: 20060525
  5. VELCADE [Suspect]
     Indication: NON-SMALL CELL LUNG CANCER
     Dosage: 3.2 MG, DAY1+8/Q3W, INTRAVENOUS
     Route: 042
  6. NORTRIPTYLINE HCL [Concomitant]
  7. INDOCIN [Concomitant]
  8. TETRACYCLINE [Concomitant]

REACTIONS (2)
  - MOUTH HAEMORRHAGE [None]
  - RASH [None]
